FAERS Safety Report 7898623-0 (Version None)
Quarter: 2011Q4

REPORT INFORMATION
  Report Type: 
  Country: None (occurrence: None)
  Receive Date: 20111107
  Receipt Date: 20111107
  Transmission Date: 20120403
  Serious: Yes (Other)
  Sender: FDA-Public Use
  Company Number: None

PATIENT
  Age: 44 Year
  Sex: Female
  Weight: 117.93 kg

DRUGS (1)
  1. AMLODIPINE BESYLATE [Suspect]
     Indication: HYPERTENSION
     Dosage: 1 TABLET
     Route: 048
     Dates: start: 20111102, end: 20111103

REACTIONS (14)
  - BLOOD PRESSURE INCREASED [None]
  - THIRST [None]
  - PRESYNCOPE [None]
  - SWELLING FACE [None]
  - DIZZINESS [None]
  - PALLOR [None]
  - VERTIGO [None]
  - TOOTHACHE [None]
  - FEAR [None]
  - NAUSEA [None]
  - ANXIETY [None]
  - LYMPH NODE PAIN [None]
  - FEELING ABNORMAL [None]
  - DYSPNOEA [None]
